FAERS Safety Report 6449704-X (Version None)
Quarter: 2009Q4

REPORT INFORMATION
  Report Type: 
  Country: None (occurrence: None)
  Receive Date: 20091120
  Receipt Date: 20091109
  Transmission Date: 20100525
  Serious: Yes (Hospitalization)
  Sender: FDA-Public Use
  Company Number: JP-AMGEN-US336949

PATIENT
  Sex: Female
  Weight: 39 kg

DRUGS (22)
  1. ENBREL [Suspect]
     Indication: RHEUMATOID ARTHRITIS
     Route: 058
     Dates: start: 20080402, end: 20080710
  2. ENBREL [Suspect]
     Route: 058
     Dates: end: 20090622
  3. ENBREL [Suspect]
     Route: 058
     Dates: start: 20090101
  4. ENBREL [Suspect]
     Dosage: SOLUTION FOR INJECTION: 25 MG TWICE WEEKLY
     Route: 058
     Dates: start: 20090721
  5. ENBREL [Suspect]
     Dosage: SOLUTION FOR INJECTION: 25 MG TWICE WEEKLY
     Route: 058
     Dates: start: 20081119
  6. ENBREL [Suspect]
     Route: 058
     Dates: start: 20090721
  7. METHOTREXATE [Suspect]
     Indication: RHEUMATOID ARTHRITIS
     Route: 048
  8. BASEN [Concomitant]
     Dosage: UNSPECIFIED
     Route: 048
  9. ASPARTATE CALCIUM [Concomitant]
     Dosage: UNSPECIFIED
     Route: 048
  10. GLAKAY [Concomitant]
     Dosage: UNSPECIFIED
     Route: 048
  11. FOSAMAX [Concomitant]
     Dosage: UNSPECIFIED
     Route: 048
  12. MYSLEE [Concomitant]
     Dosage: UNSPECIFED
     Route: 048
  13. PREDNISOLONE [Concomitant]
     Route: 048
     Dates: end: 20080523
  14. PREDNISOLONE [Concomitant]
     Route: 048
     Dates: start: 20080524, end: 20090715
  15. PREDNISOLONE [Concomitant]
     Route: 048
     Dates: start: 20090716, end: 20090910
  16. PREDNISOLONE [Concomitant]
     Route: 048
     Dates: start: 20090911
  17. ALFACALCIDOL [Concomitant]
     Dosage: UNSPECIFIED
     Route: 048
  18. MUCOSTA [Concomitant]
     Dosage: UNSPECIFIED
     Route: 048
  19. MOHRUS [Concomitant]
     Dosage: UNSPECIFIED; TAPE
  20. LOXONIN [Concomitant]
     Dosage: UNSPECIFIED
     Route: 048
  21. LIPITOR [Concomitant]
     Dosage: UNSPECIFIED
     Route: 048
  22. FOLIAMIN [Concomitant]
     Dosage: UNSPECIFIED
     Route: 048

REACTIONS (3)
  - BACTERAEMIA [None]
  - CONDITION AGGRAVATED [None]
  - RHEUMATOID ARTHRITIS [None]
